FAERS Safety Report 9100839 (Version 2)
Quarter: 2013Q1

REPORT INFORMATION
  Report Type: Spontaneous
  Country: FI (occurrence: FI)
  Receive Date: 20130215
  Receipt Date: 20130327
  Transmission Date: 20140127
  Serious: Yes (Other)
  Sender: FDA-Public Use
  Company Number: FI-ROCHE-1191198

PATIENT
  Age: 36 Year
  Sex: Male
  Weight: 73 kg

DRUGS (17)
  1. AVASTIN [Suspect]
     Indication: COLORECTAL CANCER METASTATIC
     Route: 065
     Dates: start: 20110323
  2. AVASTIN [Suspect]
     Route: 065
     Dates: start: 20110708, end: 20110901
  3. AVASTIN [Suspect]
     Route: 065
     Dates: start: 20110930, end: 20120330
  4. AVASTIN [Suspect]
     Route: 065
     Dates: start: 20121029
  5. AVASTIN [Suspect]
     Route: 065
     Dates: start: 20130213
  6. XELODA [Suspect]
     Indication: COLORECTAL CANCER METASTATIC
     Route: 065
     Dates: start: 20110323
  7. XELODA [Suspect]
     Route: 065
     Dates: start: 20110708, end: 20110901
  8. XELODA [Suspect]
     Route: 065
     Dates: start: 20110930, end: 20120330
  9. XELODA [Suspect]
     Route: 065
     Dates: start: 20121029
  10. IRINOTECAN [Suspect]
     Indication: COLORECTAL CANCER METASTATIC
     Route: 065
     Dates: start: 20110323
  11. IRINOTECAN [Suspect]
     Route: 065
     Dates: start: 20110708, end: 20110901
  12. IRINOTECAN [Suspect]
     Route: 065
     Dates: start: 20110930, end: 20120330
  13. IRINOTECAN [Suspect]
     Route: 065
     Dates: start: 20121029
  14. IRINOTECAN [Suspect]
     Route: 065
     Dates: start: 20130213
  15. OXALIPLATIN [Suspect]
     Indication: ADENOCARCINOMA
     Route: 065
  16. FOLIC ACID [Suspect]
     Indication: ADENOCARCINOMA
     Route: 065
     Dates: start: 20130213
  17. FLUOROURACIL [Suspect]
     Indication: ADENOCARCINOMA
     Route: 065
     Dates: start: 20130213

REACTIONS (22)
  - Disease progression [Not Recovered/Not Resolved]
  - Hydronephrosis [Not Recovered/Not Resolved]
  - Intestinal obstruction [Not Recovered/Not Resolved]
  - Fatigue [Unknown]
  - Gastrointestinal disorder [Not Recovered/Not Resolved]
  - Nasopharyngitis [Unknown]
  - Allodynia [Unknown]
  - Sensory loss [Not Recovered/Not Resolved]
  - Fatigue [Not Recovered/Not Resolved]
  - Stomatitis [Not Recovered/Not Resolved]
  - Hyperbilirubinaemia [Not Recovered/Not Resolved]
  - Metastases to liver [Not Recovered/Not Resolved]
  - Neutropenia [Not Recovered/Not Resolved]
  - Pain [Recovering/Resolving]
  - Nausea [Not Recovered/Not Resolved]
  - Hypotension [Not Recovered/Not Resolved]
  - Constipation [Not Recovered/Not Resolved]
  - Malaise [Not Recovered/Not Resolved]
  - Dyspepsia [Unknown]
  - Flatulence [Unknown]
  - Diarrhoea [Recovering/Resolving]
  - Neuropathy peripheral [Unknown]
